FAERS Safety Report 4276676-9 (Version None)
Quarter: 2004Q1

REPORT INFORMATION
  Report Type: 
  Country: None (occurrence: None)
  Receive Date: 20040120
  Receipt Date: 20040109
  Transmission Date: 20041129
  Serious: Yes (Other)
  Sender: FDA-Public Use
  Company Number: CO-JNJFOC-20040102572

PATIENT
  Age: 28 Year
  Sex: Female

DRUGS (2)
  1. EVRA (NORELGESTROMIN/ ETHINYL ESTRADIOL) PATCH [Suspect]
     Indication: CONTRACEPTION
     Dosage: 1 DOSE(S), 3 IN 4 WEEK, TRANSDERMAL
     Route: 062
     Dates: start: 20040102
  2. COUMADIN [Concomitant]

REACTIONS (8)
  - ABDOMINAL PAIN UPPER [None]
  - ASTHENIA [None]
  - DECREASED INTEREST [None]
  - HEADACHE [None]
  - MENORRHAGIA [None]
  - MOTION SICKNESS [None]
  - PAIN [None]
  - VAGINAL DISORDER [None]
